FAERS Safety Report 21615013 (Version 6)
Quarter: 2023Q1

REPORT INFORMATION
  Report Type: Report from Study
  Country: US (occurrence: US)
  Receive Date: 20221118
  Receipt Date: 20230317
  Transmission Date: 20230417
  Serious: No
  Sender: FDA-Public Use
  Company Number: US-002147023-NVSC2022US258439

PATIENT
  Sex: Female

DRUGS (3)
  1. KESIMPTA [Suspect]
     Active Substance: OFATUMUMAB
     Indication: Product used for unknown indication
     Dosage: UNK, QW
     Route: 065
     Dates: start: 20221105
  2. KESIMPTA [Suspect]
     Active Substance: OFATUMUMAB
     Dosage: UNK, QMO
     Route: 065
  3. KESIMPTA [Suspect]
     Active Substance: OFATUMUMAB
     Dosage: UNK
     Route: 065
     Dates: start: 20230212

REACTIONS (12)
  - Feeling abnormal [Recovered/Resolved]
  - Headache [Recovered/Resolved]
  - Motor dysfunction [Unknown]
  - Fine motor delay [Unknown]
  - Balance disorder [Unknown]
  - Bradyphrenia [Unknown]
  - Fatigue [Unknown]
  - Headache [Unknown]
  - Fatigue [Recovered/Resolved]
  - Headache [Recovered/Resolved]
  - Inappropriate schedule of product administration [Unknown]
  - Biliary colic [Unknown]

NARRATIVE: CASE EVENT DATE: 20220101
